FAERS Safety Report 7711760-6 (Version None)
Quarter: 2011Q3

REPORT INFORMATION
  Report Type: 
  Country: None (occurrence: None)
  Receive Date: 20110826
  Receipt Date: 20110817
  Transmission Date: 20111222
  Serious: Yes (Other)
  Sender: FDA-Public Use
  Company Number: US-CUBIST-2011S1000535

PATIENT

DRUGS (8)
  1. CUBICIN [Suspect]
     Indication: ARTHRITIS BACTERIAL
     Route: 042
  2. ALL OTHER THERAPEUTIC PRODUCTS [Concomitant]
     Indication: ARTHRITIS BACTERIAL
     Route: 042
  3. CEFTRIAXONE [Concomitant]
     Indication: ARTHRITIS BACTERIAL
     Route: 042
  4. VANCOMYCIN [Concomitant]
     Indication: ARTHRITIS BACTERIAL
     Route: 042
  5. CEFTRIAXONE [Concomitant]
     Indication: OSTEOMYELITIS CHRONIC
     Route: 042
  6. CUBICIN [Suspect]
     Indication: OSTEOMYELITIS CHRONIC
     Route: 042
  7. VANCOMYCIN [Concomitant]
     Indication: OSTEOMYELITIS CHRONIC
     Route: 042
  8. ALL OTHER THERAPEUTIC PRODUCTS [Concomitant]
     Indication: OSTEOMYELITIS CHRONIC
     Route: 042

REACTIONS (2)
  - LUNG DISORDER [None]
  - ABSCESS [None]
